FAERS Safety Report 6293854-8 (Version None)
Quarter: 2009Q3

REPORT INFORMATION
  Report Type: 
  Country: None (occurrence: None)
  Receive Date: 20090803
  Receipt Date: 20090722
  Transmission Date: 20100115
  Serious: Yes (Hospitalization)
  Sender: FDA-Public Use
  Company Number: US-KINGPHARMUSA00001-K200900867

PATIENT
  Age: 74 Year
  Sex: Female

DRUGS (5)
  1. ALTACE [Suspect]
     Indication: HYPERTENSION
     Dosage: UNK
     Route: 048
     Dates: end: 20090526
  2. FLUDEX [Suspect]
     Indication: HYPERTENSION
     Dosage: UNK
     Route: 048
     Dates: end: 20090602
  3. LEVOTHYROX [Concomitant]
     Indication: HYPOTHYROIDISM
     Dosage: 87.75 UG, UNK
     Route: 048
  4. BISOPROLOL [Concomitant]
     Route: 048
  5. KALEORID [Concomitant]
     Route: 048

REACTIONS (2)
  - ECZEMA [None]
  - RASH GENERALISED [None]
